FAERS Safety Report 21129534 (Version 1)
Quarter: 2022Q3

REPORT INFORMATION
  Report Type: Spontaneous
  Country: DE (occurrence: DE)
  Receive Date: 20220726
  Receipt Date: 20220726
  Transmission Date: 20221027
  Serious: Yes (Life-Threatening, Hospitalization, Other)
  Sender: FDA-Public Use
  Company Number: DE-MACLEODS PHARMACEUTICALS US LTD-MAC2022036522

PATIENT

DRUGS (1)
  1. VENLAFAXINE [Suspect]
     Active Substance: VENLAFAXINE HYDROCHLORIDE
     Indication: Product used for unknown indication
     Dosage: 22.5 GRAM, SINGLE (SUSTAINED-RELEASE TABLET)
     Route: 048

REACTIONS (4)
  - Multi-organ disorder [Recovered/Resolved]
  - Ventricular fibrillation [Recovered/Resolved]
  - Mydriasis [Recovered/Resolved]
  - Intentional overdose [Recovered/Resolved]
